FAERS Safety Report 11295300 (Version 1)
Quarter: 2015Q3

REPORT INFORMATION
  Report Type: Spontaneous
  Country: US (occurrence: None)
  Receive Date: 20150722
  Receipt Date: 20150722
  Transmission Date: 20151125
  Serious: No
  Sender: FDA-Public Use
  Company Number: None

PATIENT
  Age: 49 Year
  Sex: Male
  Weight: 119 kg

DRUGS (18)
  1. BUPROPION XL [Concomitant]
     Active Substance: BUPROPION
  2. TAMSULOSIN [Concomitant]
     Active Substance: TAMSULOSIN
  3. NPH INSULIN [Concomitant]
     Active Substance: INSULIN BEEF
  4. WARFARIN [Concomitant]
     Active Substance: WARFARIN
  5. ALLOPURINOL. [Suspect]
     Active Substance: ALLOPURINOL
     Indication: GOUT
     Route: 048
     Dates: start: 20140520, end: 20140728
  6. AMIODARONE [Concomitant]
     Active Substance: AMIODARONE
  7. GABAPENTIN. [Concomitant]
     Active Substance: GABAPENTIN
  8. LISINOPRIL. [Concomitant]
     Active Substance: LISINOPRIL
  9. CARVEDILOL. [Concomitant]
     Active Substance: CARVEDILOL
  10. CYCLOBENZAPRINE [Concomitant]
     Active Substance: CYCLOBENZAPRINE
  11. DOCUSATE SODIUM. [Concomitant]
     Active Substance: DOCUSATE SODIUM
  12. PROTEIN SUPPLEMENT [Concomitant]
     Active Substance: PROTEIN
  13. QUETIAPINE [Concomitant]
     Active Substance: QUETIAPINE
  14. AMLODIPINE [Concomitant]
     Active Substance: AMLODIPINE BESYLATE
  15. FERROUS SULFATE [Concomitant]
     Active Substance: FERROUS SULFATE\FERROUS SULFATE, DRIED
  16. FUROSEMIDE. [Concomitant]
     Active Substance: FUROSEMIDE
  17. HYDROCODONE-APAP [Concomitant]
     Active Substance: ACETAMINOPHEN\HYDROCODONE
  18. MS CONTIN [Concomitant]
     Active Substance: MORPHINE SULFATE

REACTIONS (4)
  - Rash [None]
  - Rash erythematous [None]
  - Rosacea [None]
  - Skin exfoliation [None]

NARRATIVE: CASE EVENT DATE: 20140725
